FAERS Safety Report 14787408 (Version 1)
Quarter: 2018Q2

REPORT INFORMATION
  Report Type: Spontaneous
  Country: ES (occurrence: ES)
  Receive Date: 20180421
  Receipt Date: 20180421
  Transmission Date: 20180711
  Serious: Yes (Disabling, Other)
  Sender: FDA-Public Use
  Company Number: ES-AUROBINDO-AUR-APL-2018-020809

PATIENT
  Age: 40 Year
  Sex: Female

DRUGS (6)
  1. METHYLPREDNISOLONE. [Interacting]
     Active Substance: METHYLPREDNISOLONE
     Indication: POLYMYOSITIS
     Dosage: 20 MILLIGRAM, ONCE A DAY
     Route: 065
     Dates: start: 20110701
  2. IBANDRONATE SODIUM. [Concomitant]
     Active Substance: IBANDRONATE SODIUM
     Indication: POLYMYOSITIS
     Dosage: 150 MILLIGRAM, ONCE A DAY
     Route: 065
     Dates: start: 20110701
  3. CICLOSPORIN [Concomitant]
     Active Substance: CYCLOSPORINE
     Indication: POLYMYOSITIS
     Dosage: 100 MILLIGRAM, TWO TIMES A DAY
     Dates: start: 20110701
  4. CALCIUM CARBONATE W/COLECALCIFEROL [Concomitant]
     Active Substance: CALCIUM CARBONATE\CHOLECALCIFEROL
     Indication: POLYMYOSITIS
     Dosage: TWO TIMES A DAY
     Route: 065
     Dates: start: 20110701
  5. LEVOFLOXACIN. [Suspect]
     Active Substance: LEVOFLOXACIN
     Indication: UPPER RESPIRATORY TRACT INFECTION
     Dosage: 500 MILLIGRAM, TWO TIMES A DAY
     Route: 065
  6. ESCITALOPRAM [Concomitant]
     Active Substance: ESCITALOPRAM OXALATE
     Indication: DEPRESSION
     Dosage: 10 MILLIGRAM, ONCE A DAY
     Dates: start: 20110401

REACTIONS (6)
  - Tendon disorder [Recovering/Resolving]
  - Swelling [Recovering/Resolving]
  - Gait inability [Recovering/Resolving]
  - Haemarthrosis [Recovering/Resolving]
  - Tendon pain [Recovering/Resolving]
  - Tendon rupture [Recovering/Resolving]
